FAERS Safety Report 18175580 (Version 1)
Quarter: 2020Q3

REPORT INFORMATION
  Report Type: Spontaneous
  Country: AU (occurrence: AU)
  Receive Date: 20200820
  Receipt Date: 20200820
  Transmission Date: 20201103
  Serious: Yes (Other)
  Sender: FDA-Public Use
  Company Number: AU-PFIZER INC-2020319283

PATIENT
  Sex: Male

DRUGS (2)
  1. DEPO?NISOLONE [Suspect]
     Active Substance: METHYLPREDNISOLONE ACETATE
     Dosage: UNK
     Route: 042
  2. CLEXANE [Suspect]
     Active Substance: ENOXAPARIN SODIUM

REACTIONS (5)
  - Product use issue [Unknown]
  - Bradycardia [Unknown]
  - Malignant melanoma [Unknown]
  - Haemorrhage [Unknown]
  - Off label use [Unknown]
